FAERS Safety Report 5491955-5 (Version None)
Quarter: 2007Q4

REPORT INFORMATION
  Report Type: 
  Country: None (occurrence: None)
  Receive Date: 20071022
  Receipt Date: 20071009
  Transmission Date: 20080405
  Serious: Yes (Other)
  Sender: FDA-Public Use
  Company Number: US-AVENTIS-200717017US

PATIENT
  Sex: Male

DRUGS (4)
  1. KETEK [Suspect]
     Indication: SINUSITIS
     Dates: start: 20070927, end: 20070928
  2. FLOMAX [Concomitant]
     Dosage: DOSE: UNK
     Route: 048
  3. ALLEGRA                            /01314201/ [Concomitant]
     Dosage: DOSE: UNK
  4. ALLERGY SHOTS [Concomitant]
     Dosage: DOSE: UNK

REACTIONS (16)
  - ALANINE AMINOTRANSFERASE INCREASED [None]
  - ASPARTATE AMINOTRANSFERASE INCREASED [None]
  - BILIRUBIN CONJUGATED INCREASED [None]
  - BLOOD ALKALINE PHOSPHATASE INCREASED [None]
  - BLOOD BILIRUBIN INCREASED [None]
  - BLOOD BILIRUBIN UNCONJUGATED INCREASED [None]
  - CHROMATURIA [None]
  - GAMMA-GLUTAMYLTRANSFERASE INCREASED [None]
  - HEPATIC CYST [None]
  - HEPATIC FUNCTION ABNORMAL [None]
  - NAUSEA [None]
  - OCULAR ICTERUS [None]
  - OFF LABEL USE [None]
  - PRURITUS [None]
  - RENAL CYST [None]
  - VISION BLURRED [None]
